FAERS Safety Report 11102744 (Version 1)
Quarter: 2015Q2

REPORT INFORMATION
  Report Type: Spontaneous
  Country: US (occurrence: None)
  Receive Date: 20150508
  Receipt Date: 20150508
  Transmission Date: 20150821
  Serious: Yes (Hospitalization)
  Sender: FDA-Public Use
  Company Number: None

PATIENT
  Age: 49 Year
  Sex: Male

DRUGS (1)
  1. COPAXONE [Suspect]
     Active Substance: GLATIRAMER ACETATE
     Indication: MULTIPLE SCLEROSIS
     Dosage: 40MG ?TIW?SUB-Q
     Route: 058
     Dates: start: 20140502, end: 20150402

REACTIONS (25)
  - Back pain [None]
  - Cystitis [None]
  - Flushing [None]
  - Bone pain [None]
  - Cough [None]
  - Paranoia [None]
  - Hypercholesterolaemia [None]
  - Syncope [None]
  - Chest pain [None]
  - Emotional disorder [None]
  - Increased appetite [None]
  - Depression [None]
  - Rash [None]
  - Memory impairment [None]
  - Migraine [None]
  - Arrhythmia [None]
  - Nausea [None]
  - Erectile dysfunction [None]
  - Pollakiuria [None]
  - Weight decreased [None]
  - Anxiety [None]
  - Hallucination [None]
  - Tremor [None]
  - Chills [None]
  - Diarrhoea [None]

NARRATIVE: CASE EVENT DATE: 201406
